FAERS Safety Report 20105524 (Version 1)
Quarter: 2021Q4

REPORT INFORMATION
  Report Type: Spontaneous
  Country: SK (occurrence: SK)
  Receive Date: 20211124
  Receipt Date: 20211124
  Transmission Date: 20220303
  Serious: Yes (Death, Other)
  Sender: FDA-Public Use
  Company Number: SK-BoehringerIngelheim-2021-BI-139877

PATIENT
  Age: 76 Year
  Sex: Male

DRUGS (1)
  1. PRAXBIND [Suspect]
     Active Substance: IDARUCIZUMAB
     Indication: Haemorrhage
     Route: 042
     Dates: start: 20211026, end: 20211026

REACTIONS (1)
  - Death [Fatal]

NARRATIVE: CASE EVENT DATE: 20211027
